FAERS Safety Report 17005050 (Version 1)
Quarter: 2019Q4

REPORT INFORMATION
  Report Type: Spontaneous
  Country: JP (occurrence: JP)
  Receive Date: 20191107
  Receipt Date: 20191107
  Transmission Date: 20200122
  Serious: Yes (Death, Other)
  Sender: FDA-Public Use
  Company Number: JP-BAYER-2019-199985

PATIENT
  Age: 59 Year
  Sex: Male

DRUGS (3)
  1. STIVARGA [Suspect]
     Active Substance: REGORAFENIB
     Indication: COLORECTAL CANCER
     Dosage: DAILY DOSE 160 MG
     Route: 048
  2. STIVARGA [Suspect]
     Active Substance: REGORAFENIB
     Indication: METASTASES TO LUNG
     Dosage: DAILY DOSE 120 MG
     Route: 048
  3. STIVARGA [Suspect]
     Active Substance: REGORAFENIB
     Indication: COLORECTAL CANCER
     Dosage: DAILY DOSE 80 MG
     Route: 048

REACTIONS (7)
  - Metastases to lung [Fatal]
  - Palmar-plantar erythrodysaesthesia syndrome [None]
  - Metastases to peritoneum [Fatal]
  - Ascites [None]
  - Metastases to central nervous system [Fatal]
  - Colorectal cancer [None]
  - Platelet count decreased [None]
